FAERS Safety Report 7122762-5 (Version None)
Quarter: 2010Q4

REPORT INFORMATION
  Report Type: 
  Country: None (occurrence: None)
  Receive Date: 20101124
  Receipt Date: 20101117
  Transmission Date: 20110411
  Serious: Yes (Death)
  Sender: FDA-Public Use
  Company Number: JP-ROCHE-730259

PATIENT
  Sex: Female
  Weight: 38 kg

DRUGS (8)
  1. AVASTIN [Suspect]
     Indication: RECTAL CANCER METASTATIC
     Dosage: NOTE: ACCORDING TO THE SIDE REACTION EVERY 2-4 WEEKS.
     Route: 041
     Dates: start: 20100622, end: 20100827
  2. 5-FU [Suspect]
     Indication: RECTAL CANCER METASTATIC
     Route: 041
     Dates: start: 20100825, end: 20100825
  3. 5-FU [Suspect]
     Dosage: INTRAVENOUS BOLUS
     Route: 041
     Dates: start: 20100825, end: 20100827
  4. LEVOFOLINATE [Suspect]
     Indication: RECTAL CANCER METASTATIC
     Route: 041
     Dates: start: 20100825, end: 20100825
  5. ELPLAT [Concomitant]
     Route: 041
     Dates: start: 20100825, end: 20100825
  6. KYTRIL [Concomitant]
     Route: 041
     Dates: start: 20100825, end: 20100825
  7. DECADRON [Concomitant]
     Route: 041
     Dates: start: 20100825, end: 20100825
  8. DUROTEP [Concomitant]
     Dosage: FORM: TAPE.
     Route: 062
     Dates: start: 20100405, end: 20101022

REACTIONS (7)
  - FEMALE GENITAL TRACT FISTULA [None]
  - MALAISE [None]
  - MELAENA [None]
  - PELVIC ABSCESS [None]
  - PERIPHERAL ARTERY ANEURYSM [None]
  - RECTAL PERFORATION [None]
  - SHOCK HAEMORRHAGIC [None]
